FAERS Safety Report 24549753 (Version 6)
Quarter: 2025Q1

REPORT INFORMATION
  Report Type: Spontaneous
  Country: US (occurrence: US)
  Receive Date: 20241025
  Receipt Date: 20250115
  Transmission Date: 20250409
  Serious: No
  Sender: PFIZER
  Company Number: US-PFIZER INC-202400277741

PATIENT
  Age: 9 Month
  Sex: Male
  Weight: 9.524 kg

DRUGS (4)
  1. GENOTROPIN [Suspect]
     Active Substance: SOMATROPIN
     Indication: Prader-Willi syndrome
     Dates: start: 202406
  2. GENOTROPIN [Suspect]
     Active Substance: SOMATROPIN
     Dosage: 0.2 ML, 1X/DAY
     Route: 058
     Dates: start: 20240604
  3. TYLENOL [Concomitant]
     Active Substance: ACETAMINOPHEN
     Indication: Inguinal hernia repair
  4. MOTRIN [Concomitant]
     Active Substance: IBUPROFEN
     Indication: Inguinal hernia repair

REACTIONS (1)
  - Device leakage [Unknown]

NARRATIVE: CASE EVENT DATE: 20240825
